FAERS Safety Report 22588891 (Version 1)
Quarter: 2023Q2

REPORT INFORMATION
  Report Type: Spontaneous
  Country: US (occurrence: US)
  Receive Date: 20230612
  Receipt Date: 20230612
  Transmission Date: 20230722
  Serious: No
  Sender: FDA-Public Use
  Company Number: US-ELI_LILLY_AND_COMPANY-US202306004884

PATIENT
  Age: 65 Year
  Sex: Male

DRUGS (2)
  1. TALTZ [Suspect]
     Active Substance: IXEKIZUMAB
     Indication: Psoriasis
     Dosage: 160 MG, OTHER (LOADING DOSE)
     Route: 065
     Dates: start: 202305
  2. TALTZ [Suspect]
     Active Substance: IXEKIZUMAB
     Dosage: 160 MG, UNKNOWN
     Route: 065

REACTIONS (2)
  - Extra dose administered [Unknown]
  - Inappropriate schedule of product administration [Unknown]
